FAERS Safety Report 17875274 (Version 1)
Quarter: 2020Q2

REPORT INFORMATION
  Report Type: Spontaneous
  Country: CA (occurrence: CA)
  Receive Date: 20200609
  Receipt Date: 20200609
  Transmission Date: 20200714
  Serious: Yes (Life-Threatening, Hospitalization)
  Sender: FDA-Public Use
  Company Number: CA-ACCORD-184675

PATIENT
  Age: 5 Year
  Sex: Female
  Weight: 18 kg

DRUGS (2)
  1. MERCAPTOPURINE/MERCAPTOPURINE ANHYDROUS [Suspect]
     Active Substance: MERCAPTOPURINE
     Indication: CHEMOTHERAPY
  2. METHOTREXATE. [Suspect]
     Active Substance: METHOTREXATE
     Indication: CHEMOTHERAPY

REACTIONS (2)
  - Influenza B virus test positive [Recovered/Resolved]
  - Febrile neutropenia [Recovered/Resolved]
